FAERS Safety Report 9982147 (Version 1)
Quarter: 2014Q1

REPORT INFORMATION
  Report Type: Spontaneous
  Country: US (occurrence: None)
  Receive Date: 20140306
  Receipt Date: 20140306
  Transmission Date: 20141002
  Serious: Yes (Other)
  Sender: FDA-Public Use
  Company Number: None

PATIENT
  Age: 53 Year
  Sex: Female
  Weight: 80.9 kg

DRUGS (2)
  1. XARELTO 15MG JANSSEN [Suspect]
     Indication: PULMONARY EMBOLISM
     Route: 048
     Dates: start: 20140227, end: 20140304
  2. XARELTO 15MG JANSSEN [Suspect]
     Indication: DEEP VEIN THROMBOSIS
     Route: 048
     Dates: start: 20140227, end: 20140304

REACTIONS (4)
  - Menorrhagia [None]
  - Hypotension [None]
  - Haematocrit decreased [None]
  - Haemoglobin decreased [None]
